FAERS Safety Report 4570603-2 (Version None)
Quarter: 2005Q1

REPORT INFORMATION
  Report Type: 
  Country: None (occurrence: None)
  Receive Date: 20050204
  Receipt Date: 20050124
  Transmission Date: 20050727
  Serious: Yes (Hospitalization, Other)
  Sender: FDA-Public Use
  Company Number: UG-GLAXOSMITHKLINE-B0365512A

PATIENT
  Age: 44 Year
  Sex: Female

DRUGS (8)
  1. ABACAVIR [Suspect]
     Indication: HIV INFECTION
     Route: 048
     Dates: start: 20041118
  2. DIDANOSINE [Suspect]
     Indication: HIV INFECTION
     Dates: start: 20041118
  3. KALETRA [Suspect]
     Indication: HIV INFECTION
     Dates: start: 20041118
  4. RIFAMPICIN [Suspect]
  5. ISONIAZID [Suspect]
  6. COTRIM [Concomitant]
  7. AMPICILLIN [Concomitant]
  8. GENTAMICIN [Concomitant]

REACTIONS (5)
  - ALANINE AMINOTRANSFERASE INCREASED [None]
  - ASPARTATE AMINOTRANSFERASE INCREASED [None]
  - BLOOD BILIRUBIN INCREASED [None]
  - HEPATOTOXICITY [None]
  - TOXOPLASMOSIS [None]
